FAERS Safety Report 6033971-0 (Version None)
Quarter: 2009Q1

REPORT INFORMATION
  Report Type: 
  Country: None (occurrence: None)
  Receive Date: 20090112
  Receipt Date: 20090108
  Transmission Date: 20090719
  Serious: Yes (Death)
  Sender: FDA-Public Use
  Company Number: PHHY2008IE32349

PATIENT
  Sex: Male

DRUGS (5)
  1. CLOZARIL [Suspect]
     Indication: SCHIZOPHRENIA
     Dosage: 725 MG DAILY
     Dates: start: 20070116, end: 20081101
  2. AMISULPRIDE [Concomitant]
     Dosage: UNK
     Route: 048
     Dates: start: 20070601, end: 20081101
  3. VALPROATE SODIUM [Concomitant]
     Indication: DEPRESSED MOOD
     Dosage: UNK
     Route: 048
     Dates: start: 20080401, end: 20081101
  4. VALPROATE SODIUM [Concomitant]
     Indication: ANXIETY
  5. ESCITALOPRAM [Concomitant]
     Indication: PANIC ATTACK
     Dosage: UNK
     Dates: start: 20080501, end: 20081101

REACTIONS (3)
  - BLOOD CHOLESTEROL INCREASED [None]
  - BLOOD TRIGLYCERIDES INCREASED [None]
  - COMPLETED SUICIDE [None]
